FAERS Safety Report 8494068-3 (Version None)
Quarter: 2012Q3

REPORT INFORMATION
  Report Type: 
  Country: None (occurrence: None)
  Receive Date: 20120709
  Receipt Date: 20120705
  Transmission Date: 20120928
  Serious: Yes (Death)
  Sender: FDA-Public Use
  Company Number: AU-SHIRE-SPV1-2012-00613

PATIENT
  Sex: Female

DRUGS (1)
  1. FOSRENOL [Suspect]
     Indication: RENAL IMPAIRMENT
     Dosage: UNK, UNKNOWN
     Route: 065

REACTIONS (2)
  - DEATH [None]
  - RENAL IMPAIRMENT [None]
